FAERS Safety Report 6288369-7 (Version None)
Quarter: 2009Q3

REPORT INFORMATION
  Report Type: 
  Country: None (occurrence: None)
  Receive Date: 20090729
  Receipt Date: 20090724
  Transmission Date: 20100115
  Serious: Yes (Hospitalization)
  Sender: FDA-Public Use
  Company Number: FR-PFIZER INC-2009245583

PATIENT
  Age: 71 Year

DRUGS (13)
  1. ORELOX [Suspect]
     Indication: BRONCHITIS
     Dosage: 200 MG, UNK
     Route: 048
     Dates: start: 20090513, end: 20090523
  2. TAVANIC [Suspect]
     Indication: BRONCHITIS
     Dosage: 500 MG, UNK
     Route: 048
     Dates: start: 20090523, end: 20090526
  3. PREVISCAN [Suspect]
     Indication: ATRIAL FIBRILLATION
     Dosage: EVERY 3 DAYS TABLETS
     Route: 048
     Dates: end: 20090602
  4. AMIODARONE [Concomitant]
     Indication: ATRIAL FIBRILLATION
     Dosage: 142.85 MG, UNK
     Route: 048
     Dates: start: 20060101
  5. KERLONE [Concomitant]
     Indication: HYPERTENSION
     Dosage: 10 MG,FILM COATED TABLETS
     Route: 048
  6. LERCAN [Concomitant]
     Indication: HYPERTENSION
     Dosage: 5 MG, UNK
     Route: 048
  7. LANSOPRAZOLE [Concomitant]
     Dosage: 15 MG, UNK
     Route: 048
  8. KARDEGIC [Concomitant]
     Dosage: 75 MG, UNK
     Route: 048
  9. CRESTOR [Concomitant]
     Indication: HYPERCHOLESTEROLAEMIA
     Dosage: 5 MG, UNK
     Route: 048
  10. EFFERALGAN [Concomitant]
     Dosage: 1 G, UNK
     Route: 048
  11. ANAFRANIL [Concomitant]
     Dosage: UNK
  12. XANAX [Concomitant]
     Dosage: UNK
     Route: 048
  13. ESTAZOLAM [Concomitant]
     Dosage: UNK
     Route: 048

REACTIONS (3)
  - ECCHYMOSIS [None]
  - INTERNATIONAL NORMALISED RATIO INCREASED [None]
  - MELAENA [None]
